FAERS Safety Report 15959391 (Version 1)
Quarter: 2019Q1

REPORT INFORMATION
  Report Type: Spontaneous
  Country: IL (occurrence: IL)
  Receive Date: 20190214
  Receipt Date: 20190214
  Transmission Date: 20190417
  Serious: Yes (Other)
  Sender: FDA-Public Use
  Company Number: IL-ROCHE-2262214

PATIENT
  Age: 71 Year
  Sex: Male
  Weight: 69.5 kg

DRUGS (5)
  1. ALIMTA [Suspect]
     Active Substance: PEMETREXED DISODIUM
     Indication: NON-SMALL CELL LUNG CANCER
     Route: 065
  2. AVASTIN [Suspect]
     Active Substance: BEVACIZUMAB
     Indication: NON-SMALL CELL LUNG CANCER
     Route: 065
  3. TARGIN [Suspect]
     Active Substance: NALOXONE HYDROCHLORIDE\OXYCODONE HYDROCHLORIDE
     Indication: PLEURITIC PAIN
     Route: 065
  4. CARBOPLATIN. [Suspect]
     Active Substance: CARBOPLATIN
     Indication: NON-SMALL CELL LUNG CANCER
     Route: 065
  5. MIR (ISRAEL) [Suspect]
     Active Substance: MORPHINE SULFATE
     Indication: PLEURITIC PAIN
     Route: 065

REACTIONS (4)
  - Urinary retention [Unknown]
  - Pleuritic pain [Unknown]
  - Toxicity to various agents [Unknown]
  - Aphthous ulcer [Unknown]
